FAERS Safety Report 6082551-X (Version None)
Quarter: 2009Q1

REPORT INFORMATION
  Report Type: 
  Country: None (occurrence: None)
  Receive Date: 20090218
  Receipt Date: 20090206
  Transmission Date: 20090719
  Serious: No
  Sender: FDA-Public Use
  Company Number: US-ASTRAZENECA-2009UW03560

PATIENT
  Age: 17 Year
  Sex: Male

DRUGS (4)
  1. SEROQUEL [Suspect]
     Dosage: 200 TID
     Route: 048
  2. DEPAKOTE ER [Suspect]
     Dosage: 500 AM, 250 PM
  3. TRAZODONE HCL [Concomitant]
     Dosage: 100 MG, 1/2 OR WHOLE DAILY
  4. KLONOPIN [Concomitant]
     Dosage: 0.2 MG

REACTIONS (1)
  - WHITE BLOOD CELL COUNT DECREASED [None]
